FAERS Safety Report 8271516-5 (Version None)
Quarter: 2012Q2

REPORT INFORMATION
  Report Type: 
  Country: None (occurrence: None)
  Receive Date: 20120410
  Receipt Date: 20120403
  Transmission Date: 20120825
  Serious: Yes (Other)
  Sender: FDA-Public Use
  Company Number: US-GLAXOSMITHKLINE-A0962942A

PATIENT
  Age: 62 Year
  Weight: 44 kg

DRUGS (9)
  1. PENTAMIDINE [Concomitant]
  2. FISH OIL [Concomitant]
  3. IMMUNE GLOBULIN INTRAVENOUS (HUMAN) [Concomitant]
  4. MAGNESIUM [Concomitant]
  5. CALCIUM CARBONATE [Concomitant]
  6. ACYCLOVIR [Concomitant]
  7. ARZERRA [Suspect]
     Indication: CHRONIC LYMPHOCYTIC LEUKAEMIA
     Dosage: 2000MG WEEKLY
     Route: 042
     Dates: start: 20110901, end: 20111001
  8. MULTI-VITAMIN [Concomitant]
  9. ESTRADIOL [Concomitant]

REACTIONS (1)
  - NEUROPATHY PERIPHERAL [None]
